FAERS Safety Report 16427098 (Version 1)
Quarter: 2019Q2

REPORT INFORMATION
  Report Type: Spontaneous
  Country: US (occurrence: US)
  Receive Date: 20190613
  Receipt Date: 20190613
  Transmission Date: 20190711
  Serious: Yes (Hospitalization)
  Sender: FDA-Public Use
  Company Number: US-TEVA-2019-US-1061420

PATIENT
  Age: 17 Year
  Sex: Female

DRUGS (1)
  1. CYPROHEPTADINE. [Suspect]
     Active Substance: CYPROHEPTADINE
     Dosage: INGESTED IN OVERDOSE INTENTIONALLY
     Route: 048

REACTIONS (8)
  - Delirium [Recovered/Resolved]
  - Agitation [Recovered/Resolved]
  - Speech disorder [Recovered/Resolved]
  - Mydriasis [Recovered/Resolved]
  - Toxicity to various agents [Recovered/Resolved]
  - Intentional overdose [Unknown]
  - Sinus tachycardia [Recovered/Resolved]
  - Tachycardia [Recovered/Resolved]
